FAERS Safety Report 17341929 (Version 1)
Quarter: 2020Q1

REPORT INFORMATION
  Report Type: Spontaneous
  Country: PT (occurrence: PT)
  Receive Date: 20200129
  Receipt Date: 20200129
  Transmission Date: 20200409
  Serious: Yes (Hospitalization)
  Sender: FDA-Public Use
  Company Number: PT-FRESENIUS KABI-FK202000901

PATIENT
  Age: 54 Year
  Sex: Female

DRUGS (6)
  1. PAZOPANIB [Concomitant]
     Active Substance: PAZOPANIB
     Indication: METASTASES TO LUNG
  2. GEMCITABINE. [Suspect]
     Active Substance: GEMCITABINE
     Indication: METASTASES TO LUNG
  3. GEMCITABINE. [Suspect]
     Active Substance: GEMCITABINE
     Indication: SYNOVIAL SARCOMA
     Route: 065
  4. TRABECTEDIN [Concomitant]
     Active Substance: TRABECTEDIN
     Indication: METASTASES TO LUNG
  5. DOXORUBICIN [Concomitant]
     Active Substance: DOXORUBICIN
     Indication: METASTASES TO LUNG
  6. IFOSFAMIDE. [Concomitant]
     Active Substance: IFOSFAMIDE
     Indication: METASTASES TO LUNG

REACTIONS (1)
  - Thrombotic microangiopathy [Recovered/Resolved]
